FAERS Safety Report 5977782-0 (Version None)
Quarter: 2008Q4

REPORT INFORMATION
  Report Type: 
  Country: None (occurrence: None)
  Receive Date: 20081203
  Receipt Date: 20081121
  Transmission Date: 20090506
  Serious: Yes (Hospitalization)
  Sender: FDA-Public Use
  Company Number: FR-JNJFOC-20081103420

PATIENT
  Age: 31 Year
  Sex: Male
  Weight: 96 kg

DRUGS (3)
  1. REMICADE [Suspect]
     Route: 042
  2. REMICADE [Suspect]
     Indication: CROHN'S DISEASE
     Route: 042
  3. IMUREL [Concomitant]
     Route: 048

REACTIONS (6)
  - ARTHRALGIA [None]
  - LEUKOCYTOCLASTIC VASCULITIS [None]
  - MYALGIA [None]
  - NECROSIS [None]
  - OEDEMA PERIPHERAL [None]
  - PURPURA [None]
